FAERS Safety Report 20210930 (Version 1)
Quarter: 2021Q4

REPORT INFORMATION
  Report Type: Spontaneous
  Country: US (occurrence: None)
  Receive Date: 20211220
  Receipt Date: 20211220
  Transmission Date: 20220303
  Serious: Yes (Hospitalization)
  Sender: FDA-Public Use
  Company Number: None

PATIENT
  Sex: Male

DRUGS (16)
  1. MYCOPHENOLIC ACID [Suspect]
     Active Substance: MYCOPHENOLIC ACID
     Indication: Immunosuppression
     Dosage: FREQUENCY : DAILY;?
     Route: 048
  2. ACYCLOVIR TAB [Concomitant]
  3. ASPIRIN LOW TAB [Concomitant]
  4. ATORVASTATIN [Concomitant]
     Active Substance: ATORVASTATIN
  5. BACTRIM DS TAB [Concomitant]
  6. DOXYCYCL HYC CAP [Concomitant]
  7. ELIQUIS [Concomitant]
     Active Substance: APIXABAN
  8. ENALAPRIL TAB [Concomitant]
  9. FLUCONAZOLE TAB [Concomitant]
  10. GABAPENTIN [Concomitant]
     Active Substance: GABAPENTIN
  11. HYDROCO/APAP TAB [Concomitant]
  12. MAGNESIUM-OX TAB [Concomitant]
  13. NOVOLOG MIX INJ [Concomitant]
  14. PREDNISONE [Concomitant]
     Active Substance: PREDNISONE
  15. TACROLIMUS [Concomitant]
     Active Substance: TACROLIMUS
  16. TACROLIMUS A [Concomitant]

REACTIONS (2)
  - Hospitalisation [None]
  - Therapy interrupted [None]
